FAERS Safety Report 7680218-5 (Version None)
Quarter: 2011Q3

REPORT INFORMATION
  Report Type: 
  Country: None (occurrence: None)
  Receive Date: 20110812
  Receipt Date: 20110808
  Transmission Date: 20111222
  Serious: Yes (Other)
  Sender: FDA-Public Use
  Company Number: BR-PFIZER INC-2010038191

PATIENT
  Age: 32 Year
  Sex: Female
  Weight: 71 kg

DRUGS (15)
  1. TRILEPTAL [Concomitant]
     Dosage: UNK
  2. ALPRAZOLAM [Concomitant]
     Indication: FEELING OF RELAXATION
     Dosage: UNK
     Dates: start: 20110808, end: 20110808
  3. HYPNOL [Concomitant]
     Dosage: UNK
  4. FUROSEMIDE [Concomitant]
     Indication: WEIGHT INCREASED
     Dosage: UNK
     Dates: start: 20110808, end: 20110808
  5. BACLOFEN [Concomitant]
     Indication: FIBROMYALGIA
     Dosage: UNK
     Dates: start: 20110808, end: 20110808
  6. AMITRIPTYLINE HYDROCHLORIDE [Concomitant]
     Indication: FIBROMYALGIA
     Dosage: 25 MG, 1X/DAY AT NIGHT
  7. ZOLOFT [Suspect]
     Indication: BIPOLAR DISORDER
     Dosage: 50 MG (ONE TABLET), 1X/DAY
     Route: 048
     Dates: start: 20070101, end: 20080101
  8. ZOLOFT [Suspect]
     Indication: DEPRESSION
     Dosage: 50 MG (ONE TABLET), 1X/DAY
     Route: 048
     Dates: start: 20080501, end: 20110501
  9. ROHYPNOL [Concomitant]
     Indication: SLEEP DISORDER
     Dosage: 2 MG, 1X/DAY
  10. ZOLOFT [Suspect]
     Indication: ANXIETY
     Dosage: 50 MG (ONE TABLET), 1X/DAY
     Route: 048
     Dates: start: 20110724
  11. CLONAZEPAM [Concomitant]
     Indication: SLEEP DISORDER
     Dosage: 3 MG, 1X/DAY AT NIGHT
  12. SYNTHROID [Concomitant]
     Indication: THYROID DISORDER
     Dosage: 50 MG, 1X/DAY
  13. BACLOFEN [Concomitant]
     Indication: PAIN IN EXTREMITY
  14. CLONAZEPAM [Concomitant]
     Indication: SLEEP DISORDER
     Dosage: 3 MG, 1X/DAY
  15. FUROSEMIDE [Concomitant]
     Indication: SWELLING

REACTIONS (9)
  - WEIGHT INCREASED [None]
  - VISUAL IMPAIRMENT [None]
  - TONGUE DISORDER [None]
  - HEADACHE [None]
  - FATIGUE [None]
  - SOMNOLENCE [None]
  - DECREASED APPETITE [None]
  - WEIGHT DECREASED [None]
  - INCREASED APPETITE [None]
